FAERS Safety Report 8094655-0 (Version None)
Quarter: 2012Q1

REPORT INFORMATION
  Report Type: 
  Country: None (occurrence: None)
  Receive Date: 20120131
  Receipt Date: 20111122
  Transmission Date: 20120608
  Serious: No
  Sender: FDA-Public Use
  Company Number: US-ABBOTT-11P-163-0877241-00

PATIENT
  Sex: Female
  Weight: 54.48 kg

DRUGS (5)
  1. CREON [Suspect]
     Indication: PANCREATIC ENZYMES DECREASED
     Dates: start: 20080701
  2. METOPROLOL TARTRATE [Concomitant]
     Indication: ATRIAL FIBRILLATION
  3. LEVOXYL [Concomitant]
     Indication: HYPOTHYROIDISM
  4. XANAX [Concomitant]
     Indication: INSOMNIA
  5. MULTI-VITAMIN [Concomitant]
     Indication: SUPPLEMENTATION THERAPY

REACTIONS (5)
  - ORAL PAIN [None]
  - DYSPHAGIA [None]
  - NASOPHARYNGITIS [None]
  - ODYNOPHAGIA [None]
  - COUGH [None]
